FAERS Safety Report 5770950-2 (Version None)
Quarter: 2008Q2

REPORT INFORMATION
  Report Type: 
  Country: None (occurrence: None)
  Receive Date: 20080613
  Receipt Date: 20080519
  Transmission Date: 20081010
  Serious: No
  Sender: FDA-Public Use
  Company Number: US-ABBOTT-08P-163-0452735-00

PATIENT
  Sex: Male
  Weight: 90.8 kg

DRUGS (2)
  1. HUMIRA [Suspect]
     Indication: PSORIASIS
     Route: 058
     Dates: start: 20070601, end: 20071221
  2. HUMIRA [Suspect]
     Indication: PSORIATIC ARTHROPATHY
     Route: 058
     Dates: start: 20080201

REACTIONS (4)
  - ACCIDENTAL EXPOSURE [None]
  - BLOOD TESTOSTERONE DECREASED [None]
  - HORMONE LEVEL ABNORMAL [None]
  - VIRAL INFECTION [None]
